FAERS Safety Report 21369380 (Version 1)
Quarter: 2022Q3

REPORT INFORMATION
  Report Type: Spontaneous
  Country: DE (occurrence: DE)
  Receive Date: 20220923
  Receipt Date: 20220923
  Transmission Date: 20221027
  Serious: Yes (Life-Threatening, Hospitalization)
  Sender: FDA-Public Use
  Company Number: DE-NOVARTISPH-NVSC2022DE214474

PATIENT
  Age: 51 Year
  Sex: Male

DRUGS (11)
  1. SULFAMETHOXAZOLE\TRIMETHOPRIM [Suspect]
     Active Substance: SULFAMETHOXAZOLE\TRIMETHOPRIM
     Indication: Product used for unknown indication
     Dosage: UNK (800/160 MG, NACH SCHEMA)
     Route: 048
  2. QUETIAPINE [Suspect]
     Active Substance: QUETIAPINE
     Indication: Product used for unknown indication
     Dosage: 100 MG, QD (0-0-2-0)
     Route: 048
  3. QUETIAPINE [Suspect]
     Active Substance: QUETIAPINE
     Dosage: 200 MG, QD ( 0-0-1-0)
     Route: 048
  4. ESCITALOPRAM [Suspect]
     Active Substance: ESCITALOPRAM OXALATE
     Indication: Product used for unknown indication
     Dosage: 20 MG, QD (1-0-0-0)
     Route: 048
  5. LAMOTRIGINE [Suspect]
     Active Substance: LAMOTRIGINE
     Indication: Product used for unknown indication
     Dosage: 150 MG, BID (1-0-0-1)
     Route: 048
  6. DESMOPRESSIN [Suspect]
     Active Substance: DESMOPRESSIN
     Indication: Product used for unknown indication
     Dosage: 0.009 MG, QD (0-0-2-0, NASENSPRAY)
     Route: 045
  7. DOXEPIN [Suspect]
     Active Substance: DOXEPIN
     Indication: Product used for unknown indication
     Dosage: 50 MG, QD (0-0-0-2)
     Route: 048
  8. ATORVASTATIN [Concomitant]
     Active Substance: ATORVASTATIN
     Indication: Product used for unknown indication
     Dosage: 10 MG, QD (0-0-1-0)
     Route: 048
  9. PANTOPRAZOLE [Concomitant]
     Active Substance: PANTOPRAZOLE
     Indication: Product used for unknown indication
     Dosage: 40 MG, QD (0-0-1-0)
     Route: 048
  10. LEVETIRACETAM [Concomitant]
     Active Substance: LEVETIRACETAM
     Indication: Product used for unknown indication
     Dosage: 1500 MG, BID (1-0-0-1)
     Route: 048
  11. BISOPROLOL [Concomitant]
     Active Substance: BISOPROLOL
     Indication: Product used for unknown indication
     Dosage: 5 MG (0.5-0-0.5-0)
     Route: 048

REACTIONS (5)
  - Product prescribing error [Unknown]
  - Urinary retention [Unknown]
  - Urinary tract infection [Unknown]
  - Hyponatraemia [Unknown]
  - Pollakiuria [Unknown]
